FAERS Safety Report 16432529 (Version 1)
Quarter: 2019Q3

REPORT INFORMATION
  Report Type: Spontaneous
  Country: US (occurrence: US)
  Receive Date: 20190614
  Receipt Date: 20190614
  Transmission Date: 20191004
  Serious: Yes (Hospitalization)
  Sender: FDA-Public Use
  Company Number: None

PATIENT
  Age: 59 Year
  Sex: Male

DRUGS (6)
  1. ENBREL [Suspect]
     Active Substance: ETANERCEPT
     Indication: RHEUMATOID ARTHRITIS
     Dosage: ?          OTHER FREQUENCY:ONCE WEEKLY;?
     Route: 058
     Dates: start: 20150814, end: 20190614
  2. ONDANSETRON [Concomitant]
     Active Substance: ONDANSETRON
  3. PANTAPROZOLE [Concomitant]
     Active Substance: PANTOPRAZOLE SODIUM
  4. KEPPRA [Concomitant]
     Active Substance: LEVETIRACETAM
  5. PREDNISONE. [Concomitant]
     Active Substance: PREDNISONE
  6. SUCRALFATE. [Concomitant]
     Active Substance: SUCRALFATE

REACTIONS (2)
  - Rheumatoid arthritis [None]
  - Ulcer [None]

NARRATIVE: CASE EVENT DATE: 20190511
